FAERS Safety Report 17144867 (Version 2)
Quarter: 2019Q4

REPORT INFORMATION
  Report Type: Spontaneous
  Country: JP (occurrence: JP)
  Receive Date: 20191212
  Receipt Date: 20191227
  Transmission Date: 20200122
  Serious: Yes (Other)
  Sender: FDA-Public Use
  Company Number: JP-TEVA-2019-JP-1136066

PATIENT
  Age: 77 Year
  Sex: Male

DRUGS (8)
  1. ENTACAPONE. [Concomitant]
     Active Substance: ENTACAPONE
  2. NEUPRO [Concomitant]
     Active Substance: ROTIGOTINE
  3. AZILECT [Suspect]
     Active Substance: RASAGILINE MESYLATE
     Indication: PARKINSON^S DISEASE
     Dosage: 1 MILLIGRAM DAILY;
     Route: 048
     Dates: start: 20190918, end: 20191016
  4. MAGNESIUM OXIDE. [Concomitant]
     Active Substance: MAGNESIUM OXIDE
  5. CARBIDOPA MONOHYDRATE W/LEVODOPA [Concomitant]
     Active Substance: CARBIDOPA\LEVODOPA
  6. PRAMIPEXOLE HYDROCHLORIDE MONOHYDRATE [Concomitant]
     Active Substance: PRAMIPEXOLE
  7. MOSAPRIDE CITRATE [Concomitant]
     Active Substance: MOSAPRIDE CITRATE
  8. LOXOPROFEN NA [Concomitant]
     Active Substance: LOXOPROFEN SODIUM

REACTIONS (3)
  - Parkinson^s disease [Unknown]
  - Condition aggravated [Recovering/Resolving]
  - Parkinsonian gait [Recovered/Resolved]

NARRATIVE: CASE EVENT DATE: 201909
